FAERS Safety Report 21565845 (Version 1)
Quarter: 2022Q4

REPORT INFORMATION
  Report Type: Report from Study
  Country: US (occurrence: US)
  Receive Date: 20221108
  Receipt Date: 20221108
  Transmission Date: 20230113
  Serious: Yes (Hospitalization)
  Sender: FDA-Public Use
  Company Number: US-GILEAD-2022-0603740

PATIENT
  Sex: Male
  Weight: 97.5 kg

DRUGS (3)
  1. AMBRISENTAN [Suspect]
     Active Substance: AMBRISENTAN
     Indication: Pulmonary arterial hypertension
     Dosage: UNK
     Route: 065
     Dates: end: 202210
  2. TREPROSTINIL SODIUM [Suspect]
     Active Substance: TREPROSTINIL SODIUM
     Indication: Pulmonary arterial hypertension
     Dosage: 54 ?G, QID
     Route: 055
     Dates: start: 20210628
  3. ESBRIET [Concomitant]
     Active Substance: PIRFENIDONE

REACTIONS (1)
  - Oxygen saturation decreased [Unknown]
